FAERS Safety Report 14325471 (Version 1)
Quarter: 2017Q4

REPORT INFORMATION
  Report Type: Spontaneous
  Country: US (occurrence: US)
  Receive Date: 20171225
  Receipt Date: 20171225
  Transmission Date: 20180321
  Serious: Yes (Life-Threatening, Hospitalization, Other)
  Sender: FDA-Public Use
  Company Number: None

PATIENT
  Sex: Male
  Weight: 99 kg

DRUGS (9)
  1. CALCIUM [Concomitant]
     Active Substance: CALCIUM
  2. ZINC. [Concomitant]
     Active Substance: ZINC
  3. ATENOLOL. [Concomitant]
     Active Substance: ATENOLOL
  4. ULORIC [Suspect]
     Active Substance: FEBUXOSTAT
     Indication: GOUT
  5. ANDROGEL [Concomitant]
     Active Substance: TESTOSTERONE
  6. MAG [Concomitant]
  7. BENICAR [Concomitant]
     Active Substance: OLMESARTAN MEDOXOMIL
  8. 81 MG ASPIRIN [Concomitant]
     Active Substance: ASPIRIN
  9. CRESTOR [Concomitant]
     Active Substance: ROSUVASTATIN CALCIUM

REACTIONS (2)
  - Myocardial infarction [None]
  - Coronary artery occlusion [None]

NARRATIVE: CASE EVENT DATE: 20120108
